FAERS Safety Report 9469603 (Version 2)
Quarter: 2013Q3

REPORT INFORMATION
  Report Type: Report from Study
  Country: US (occurrence: US)
  Receive Date: 20130822
  Receipt Date: 20130822
  Transmission Date: 20140515
  Serious: Yes (Hospitalization, Other)
  Sender: FDA-Public Use
  Company Number: US-BRISTOL-MYERS SQUIBB COMPANY-14357313

PATIENT
  Age: 77 Year
  Sex: Male

DRUGS (5)
  1. IPILIMUMAB [Suspect]
     Indication: MALIGNANT MELANOMA
     Route: 042
     Dates: start: 20080729, end: 20080930
  2. ATENOLOL [Concomitant]
     Dates: start: 20081014
  3. LEVOTHYROXINE [Concomitant]
     Dates: start: 20081014
  4. LISINOPRIL [Concomitant]
     Dates: start: 20081014
  5. ZOCOR [Concomitant]
     Dates: start: 20081014

REACTIONS (2)
  - Diarrhoea [Recovered/Resolved]
  - Decreased appetite [Recovered/Resolved]
